FAERS Safety Report 8933343 (Version 1)
Quarter: 2012Q4

REPORT INFORMATION
  Report Type: 
  Country: US (occurrence: US)
  Receive Date: 20121129
  Receipt Date: 20121129
  Transmission Date: 20130627
  Serious: Yes (Hospitalization)
  Sender: FDA-Public Use
  Company Number: US-AMGEN-USASP2012075795

PATIENT
  Age: 67 Year
  Sex: Female

DRUGS (3)
  1. ENBREL [Suspect]
     Indication: RHEUMATOID ARTHRITIS
     Dosage: 50 mg, biweekly
     Dates: start: 20010101, end: 20120802
  2. INSULIN [Concomitant]
     Dosage: UNK
     Dates: start: 20120822
  3. METHOTREXATE [Concomitant]
     Dosage: 25 mg, qwk
     Dates: start: 1991, end: 20120802

REACTIONS (2)
  - Limb injury [Recovered/Resolved]
  - Cellulitis [Recovered/Resolved]
